FAERS Safety Report 13032796 (Version 2)
Quarter: 2017Q1

REPORT INFORMATION
  Report Type: Spontaneous
  Country: US (occurrence: US)
  Receive Date: 20161215
  Receipt Date: 20170208
  Transmission Date: 20170428
  Serious: Yes (Death)
  Sender: FDA-Public Use
  Company Number: US-ACTELION-A-NJ2016-146947

PATIENT
  Age: 57 Year
  Sex: Female

DRUGS (12)
  1. XARELTO [Concomitant]
     Active Substance: RIVAROXABAN
  2. ZOFRAN [Concomitant]
     Active Substance: ONDANSETRON HYDROCHLORIDE
  3. TRAMADOL. [Concomitant]
     Active Substance: TRAMADOL
  4. TYVASO [Concomitant]
     Active Substance: TREPROSTINIL
  5. AMITRIPTYLINE [Concomitant]
     Active Substance: AMITRIPTYLINE
  6. LISINOPRIL. [Concomitant]
     Active Substance: LISINOPRIL
  7. CYCLOBENZAPRINE [Concomitant]
     Active Substance: CYCLOBENZAPRINE
  8. OPSUMIT [Suspect]
     Active Substance: MACITENTAN
     Indication: PULMONARY ARTERIAL HYPERTENSION
     Dosage: 10 MG, QD
     Route: 048
     Dates: start: 20140311
  9. OFLOXACIN. [Concomitant]
     Active Substance: OFLOXACIN
  10. FUROSEMIDE. [Concomitant]
     Active Substance: FUROSEMIDE
  11. PREDNISOLONE. [Concomitant]
     Active Substance: PREDNISOLONE
  12. GABAPENTIN. [Concomitant]
     Active Substance: GABAPENTIN

REACTIONS (4)
  - Intestinal obstruction [Fatal]
  - Infection [Fatal]
  - Abdominal pain [Fatal]
  - Septic shock [Fatal]
